FAERS Safety Report 23488642 (Version 2)
Quarter: 2024Q1

REPORT INFORMATION
  Report Type: Spontaneous
  Country: US (occurrence: US)
  Receive Date: 20240206
  Receipt Date: 20240226
  Transmission Date: 20240409
  Serious: No
  Sender: FDA-Public Use
  Company Number: US-SA-SAC20240130001451

PATIENT
  Age: 18 Year
  Sex: Female

DRUGS (3)
  1. DUPIXENT [Suspect]
     Active Substance: DUPILUMAB
     Indication: Dermatitis atopic
     Dosage: UNK UNK, 1X
     Route: 058
     Dates: start: 202312, end: 202312
  2. DUPIXENT [Suspect]
     Active Substance: DUPILUMAB
     Dosage: 300 MG, QOW
     Route: 058
  3. TACROLIMUS [Suspect]
     Active Substance: TACROLIMUS

REACTIONS (14)
  - Burning sensation [Unknown]
  - Pustule [Unknown]
  - Scab [Unknown]
  - Stress [Not Recovered/Not Resolved]
  - Abdominal distension [Not Recovered/Not Resolved]
  - Emotional distress [Not Recovered/Not Resolved]
  - Dermatitis [Unknown]
  - Erythema [Unknown]
  - Injection site pain [Unknown]
  - Eczema [Unknown]
  - Inappropriate schedule of product administration [Unknown]
  - Accidental exposure to product [Unknown]
  - Exposure via skin contact [Unknown]
  - Product dose omission in error [Unknown]

NARRATIVE: CASE EVENT DATE: 20240126
